FAERS Safety Report 7792844-3 (Version None)
Quarter: 2011Q4

REPORT INFORMATION
  Report Type: 
  Country: None (occurrence: None)
  Receive Date: 20111003
  Receipt Date: 20110922
  Transmission Date: 20120403
  Serious: Yes (Hospitalization)
  Sender: FDA-Public Use
  Company Number: GB-GLAXOSMITHKLINE-B0740856A

PATIENT
  Sex: Female

DRUGS (15)
  1. ONDANSETRON [Concomitant]
     Dates: start: 20101101
  2. BENDROFLUMETHIAZIDE [Concomitant]
  3. CHLORAMBUCIL [Suspect]
     Indication: CHRONIC LYMPHOCYTIC LEUKAEMIA
     Dosage: 16MG MONTHLY
     Route: 048
     Dates: start: 20101105
  4. SODIUM BICARBONATE [Concomitant]
  5. ACYCLOVIR [Concomitant]
     Dates: start: 20101101
  6. BECLOMETHASONE DIPROPIONATE [Concomitant]
  7. COTRIM [Concomitant]
     Dates: start: 20101105
  8. DOXAZOSIN MESYLATE [Concomitant]
  9. ASPIRIN [Concomitant]
  10. ATENOLOL [Concomitant]
  11. FUROSEMIDE [Concomitant]
  12. ZOLPIDEM [Concomitant]
  13. RITUXIMAB [Suspect]
     Indication: CHRONIC LYMPHOCYTIC LEUKAEMIA
     Dosage: 580MG MONTHLY
     Route: 042
     Dates: start: 20101105
  14. DOMPERIDONE [Concomitant]
     Dates: start: 20101101
  15. OMEPRAZOLE [Concomitant]

REACTIONS (1)
  - ESCHERICHIA URINARY TRACT INFECTION [None]
